FAERS Safety Report 8766295 (Version 2)
Quarter: 2012Q4

REPORT INFORMATION
  Report Type: 
  Country: ES (occurrence: ES)
  Receive Date: 20120904
  Receipt Date: 20120914
  Transmission Date: 20130627
  Serious: Yes (Hospitalization, Other)
  Sender: FDA-Public Use
  Company Number: ES-AMGEN-ESPSP2012055135

PATIENT
  Age: 60 Year
  Sex: Male
  Weight: 87 kg

DRUGS (6)
  1. VECTIBIX [Suspect]
     Indication: COLORECTAL CANCER METASTATIC
     Dosage: 522 mg, q2wk
     Route: 042
     Dates: start: 20111228, end: 20120125
  2. CPT-11 [Concomitant]
     Indication: COLORECTAL CANCER METASTATIC
     Dosage: UNK
     Route: 042
     Dates: start: 20111116, end: 20120125
  3. PREDNISONE [Concomitant]
     Dosage: 2.5 mg, bid
     Route: 048
  4. CERTICAN [Concomitant]
     Dosage: 25 mg, UNK
     Route: 048
  5. CARDYL [Concomitant]
     Dosage: 30 mg, UNK
     Route: 048
  6. ENALAPRIL [Concomitant]
     Dosage: 5 mg, bid
     Route: 048

REACTIONS (1)
  - Necrotising fasciitis [Recovered/Resolved]
